FAERS Safety Report 25104024 (Version 2)
Quarter: 2025Q2

REPORT INFORMATION
  Report Type: Report from Study
  Country: US (occurrence: US)
  Receive Date: 20250321
  Receipt Date: 20250411
  Transmission Date: 20250717
  Serious: Yes (Hospitalization)
  Sender: DOUGLAS PHARMACEUTICALS
  Company Number: US-DOUGLAS PHARMACEUTICALS US-2025DGL00052

PATIENT
  Age: 39 Year
  Sex: Male
  Weight: 108.66 kg

DRUGS (4)
  1. CLOZAPINE [Suspect]
     Active Substance: CLOZAPINE
     Indication: Schizoaffective disorder depressive type
     Dosage: 100 MG, 2X/DAY
     Route: 048
  2. CLOZAPINE [Suspect]
     Active Substance: CLOZAPINE
     Dosage: 200 MG, 1X/DAY
     Route: 048
  3. UNSPECIFIED INGREDIENT [Concomitant]
     Active Substance: UNSPECIFIED INGREDIENT
     Dates: start: 2008
  4. DULOXETINE [Concomitant]
     Active Substance: DULOXETINE
     Dosage: 30 MG, 1X/DAY

REACTIONS (3)
  - Aggression [Recovering/Resolving]
  - Psychotic disorder [Recovering/Resolving]
  - Treatment noncompliance [Recovered/Resolved]

NARRATIVE: CASE EVENT DATE: 20241219
